FAERS Safety Report 6759108-8 (Version None)
Quarter: 2010Q2

REPORT INFORMATION
  Report Type: 
  Country: None (occurrence: None)
  Receive Date: 20100607
  Receipt Date: 20100602
  Transmission Date: 20101027
  Serious: Yes (Death, Life-Threatening, Hospitalization, Other)
  Sender: FDA-Public Use
  Company Number: IT-ROXANE LABORATORIES, INC.-2010-RO-00670RO

PATIENT
  Age: 7 Day
  Sex: Male
  Weight: 1 kg

DRUGS (11)
  1. ZIDOVUDINE [Suspect]
     Indication: ANTIRETROVIRAL THERAPY
     Route: 042
  2. CLARITHROMYCIN [Suspect]
     Indication: DRUG EXPOSURE DURING PREGNANCY
     Route: 064
  3. CLARITHROMYCIN [Suspect]
     Indication: PROPHYLAXIS
  4. GENTAMICIN [Suspect]
     Indication: DRUG EXPOSURE DURING PREGNANCY
     Route: 064
  5. GENTAMICIN [Suspect]
     Indication: PROPHYLAXIS
  6. CUROSURF [Suspect]
     Indication: NEONATAL RESPIRATORY DISTRESS SYNDROME
  7. AMPICILLIN AND SULBACTAM [Suspect]
     Indication: PROPHYLAXIS
  8. AMIKACIN [Suspect]
     Indication: PROPHYLAXIS
  9. LAMIVUDINE [Suspect]
     Indication: PATHOGEN RESISTANCE
     Route: 042
  10. LAMIVUDINE [Suspect]
     Indication: ANTIRETROVIRAL THERAPY
  11. VANCOMYCIN [Suspect]
     Indication: ANTIBIOTIC THERAPY

REACTIONS (8)
  - GASTROINTESTINAL HYPOMOTILITY [None]
  - HYPERGLYCAEMIA [None]
  - ILEAL PERFORATION [None]
  - INFANTILE APNOEIC ATTACK [None]
  - METABOLIC ACIDOSIS [None]
  - NECROTISING ENTEROCOLITIS NEONATAL [None]
  - NEONATAL RESPIRATORY DISTRESS SYNDROME [None]
  - PREMATURE BABY [None]
